FAERS Safety Report 16860038 (Version 1)
Quarter: 2019Q3

REPORT INFORMATION
  Report Type: Spontaneous
  Country: US (occurrence: US)
  Receive Date: 20190927
  Receipt Date: 20190927
  Transmission Date: 20191005
  Serious: No
  Sender: FDA-Public Use
  Company Number: US-GLAXOSMITHKLINE-US2019171657

PATIENT
  Age: 32 Year
  Sex: Female

DRUGS (1)
  1. ABREVA [Suspect]
     Active Substance: DOCOSANOL
     Indication: ORAL HERPES
     Dosage: UNK
     Dates: start: 20190918

REACTIONS (5)
  - Oral herpes [Unknown]
  - Lip pain [Unknown]
  - Condition aggravated [Unknown]
  - Product complaint [Unknown]
  - Lip oedema [Unknown]

NARRATIVE: CASE EVENT DATE: 20190919
